FAERS Safety Report 7516780-2 (Version None)
Quarter: 2011Q2

REPORT INFORMATION
  Report Type: 
  Country: None (occurrence: None)
  Receive Date: 20110601
  Receipt Date: 20110526
  Transmission Date: 20111010
  Serious: Yes (Death)
  Sender: FDA-Public Use
  Company Number: PHHY2011GB46497

PATIENT
  Age: 67 Year
  Sex: Male

DRUGS (8)
  1. OXAZEPAM [Suspect]
  2. METOCLOPRAMIDE [Suspect]
  3. DOXYLAMINE SUCCINATE [Suspect]
  4. DMD [Suspect]
  5. FLUOXETINE [Suspect]
  6. DIHYDROCODEINE BITARTRATE INJ [Suspect]
  7. DIAZEPAM [Suspect]
  8. TEMAZEPAM [Suspect]

REACTIONS (2)
  - FALL [None]
  - INJURY [None]
